FAERS Safety Report 22253429 (Version 1)
Quarter: 2023Q2

REPORT INFORMATION
  Report Type: Report from Study
  Country: MX (occurrence: MX)
  Receive Date: 20230426
  Receipt Date: 20230426
  Transmission Date: 20230721
  Serious: Yes (Other)
  Sender: FDA-Public Use
  Company Number: MX-002147023-NVSC2023MX091306

PATIENT
  Age: 56 Year
  Sex: Female
  Weight: 46 kg

DRUGS (2)
  1. EXFORGE [Suspect]
     Active Substance: AMLODIPINE BESYLATE\VALSARTAN
     Indication: Hypertension
     Dosage: 1 DOSAGE FORM, QD
     Route: 048
     Dates: start: 202108
  2. NEBIVOLOL [Concomitant]
     Active Substance: NEBIVOLOL
     Indication: Product used for unknown indication
     Dosage: 0.5 DOSAGE FORM (5MG), QD
     Route: 048
     Dates: start: 202204

REACTIONS (4)
  - Systemic scleroderma [Recovering/Resolving]
  - Flatulence [Recovering/Resolving]
  - Diarrhoea [Recovering/Resolving]
  - Food intolerance [Recovering/Resolving]

NARRATIVE: CASE EVENT DATE: 20210801
